FAERS Safety Report 9175398 (Version 1)
Quarter: 2013Q1

REPORT INFORMATION
  Report Type: Spontaneous
  Country: US (occurrence: US)
  Receive Date: 20130320
  Receipt Date: 20130320
  Transmission Date: 20140127
  Serious: No
  Sender: FDA-Public Use
  Company Number: US-PFIZER INC-2013090729

PATIENT
  Age: 67 Year
  Sex: Female
  Weight: 101.59 kg

DRUGS (3)
  1. CELEBREX [Suspect]
     Indication: ARTHRITIS
     Dosage: 200 MG, 1X/DAY
     Route: 048
     Dates: end: 201303
  2. METFORMIN [Concomitant]
     Indication: BLOOD GLUCOSE ABNORMAL
     Dosage: UNK
  3. NEURONTIN [Concomitant]
     Indication: NEURALGIA
     Dosage: 300 MG, 1X/DAY
     Route: 048

REACTIONS (1)
  - Arthritis [Unknown]
